FAERS Safety Report 11895351 (Version 1)
Quarter: 2016Q1

REPORT INFORMATION
  Report Type: Spontaneous
  Country: FR (occurrence: FR)
  Receive Date: 20160107
  Receipt Date: 20160107
  Transmission Date: 20160526
  Serious: Yes (Hospitalization)
  Sender: FDA-Public Use
  Company Number: FR-SA-2016SA001332

PATIENT
  Age: 69 Year
  Sex: Female

DRUGS (12)
  1. STILNOX [Suspect]
     Active Substance: ZOLPIDEM TARTRATE
     Route: 048
     Dates: start: 20151101, end: 20151105
  2. EUPANTOL [Suspect]
     Active Substance: PANTOPRAZOLE SODIUM
     Route: 048
     Dates: start: 20151002
  3. OCTREOTIDE. [Suspect]
     Active Substance: OCTREOTIDE
     Route: 048
     Dates: start: 20151104, end: 20151109
  4. TRIATEC [Concomitant]
     Active Substance: RAMIPRIL
     Route: 048
     Dates: start: 2014
  5. OCTREOTIDE. [Suspect]
     Active Substance: OCTREOTIDE
     Route: 048
     Dates: start: 20151103
  6. BISOPROLOL [Concomitant]
     Active Substance: BISOPROLOL
     Route: 048
     Dates: start: 2014
  7. EUPRESSYL [Concomitant]
     Active Substance: URAPIDIL
     Route: 048
     Dates: start: 2014
  8. LARGACTIL [Suspect]
     Active Substance: CHLORPROMAZINE
     Route: 042
     Dates: start: 20151103, end: 20151103
  9. LASILIX [Concomitant]
     Active Substance: FUROSEMIDE
     Route: 048
     Dates: start: 2014
  10. PRAVASTATIN [Concomitant]
     Active Substance: PRAVASTATIN\PRAVASTATIN SODIUM
     Route: 048
     Dates: start: 2014
  11. STILNOX [Suspect]
     Active Substance: ZOLPIDEM TARTRATE
     Route: 048
     Dates: end: 20151112
  12. METHYLPREDNISOLONE. [Suspect]
     Active Substance: METHYLPREDNISOLONE
     Route: 042
     Dates: start: 20151101, end: 20151109

REACTIONS (1)
  - Thrombocytopenia [Unknown]

NARRATIVE: CASE EVENT DATE: 20151107
